FAERS Safety Report 11142536 (Version 1)
Quarter: 2015Q2

REPORT INFORMATION
  Report Type: Spontaneous
  Country: US (occurrence: None)
  Receive Date: 20150526
  Receipt Date: 20150526
  Transmission Date: 20150821
  Serious: Yes (Life-Threatening, Hospitalization, Disabling)
  Sender: FDA-Public Use
  Company Number: None

PATIENT
  Age: 55 Year
  Sex: Female
  Weight: 95.26 kg

DRUGS (12)
  1. FENTYNAL [Concomitant]
     Active Substance: FENTANYL
  2. BRIMONIDINE [Concomitant]
     Active Substance: BRIMONIDINE\BRIMONIDINE TARTRATE
  3. MULTIVITAMIN [Concomitant]
     Active Substance: VITAMINS
  4. FETZIMA [Suspect]
     Active Substance: LEVOMILNACIPRAN HYDROCHLORIDE
     Indication: MAJOR DEPRESSION
     Route: 048
     Dates: start: 20150304, end: 20150401
  5. PLAQUENIL [Concomitant]
     Active Substance: HYDROXYCHLOROQUINE SULFATE
  6. OXYCODONE [Concomitant]
     Active Substance: OXYCODONE
  7. CLONAZEPAM. [Concomitant]
     Active Substance: CLONAZEPAM
  8. DOZALIMIDE [Concomitant]
  9. GABEPENTIN [Concomitant]
  10. TOREDOL [Concomitant]
  11. TIMOLOL [Concomitant]
     Active Substance: TIMOLOL
  12. FETZIMA [Suspect]
     Active Substance: LEVOMILNACIPRAN HYDROCHLORIDE
     Indication: BIPOLAR I DISORDER
     Route: 048
     Dates: start: 20150304, end: 20150401

REACTIONS (1)
  - Blood pressure increased [None]

NARRATIVE: CASE EVENT DATE: 20150304
